FAERS Safety Report 8988395 (Version 1)
Quarter: 2012Q4

REPORT INFORMATION
  Report Type: Spontaneous
  Country: US (occurrence: None)
  Receive Date: 20121220
  Receipt Date: 20121220
  Transmission Date: 20130627
  Serious: No
  Sender: FDA-Public Use
  Company Number: None

PATIENT
  Age: 42 Year
  Sex: Female

DRUGS (1)
  1. XELODA 500 MG GENETECH [Suspect]
     Indication: BREAST CANCER
     Dosage: 1,500 MG Daily PO
     Route: 048
     Dates: start: 20120919

REACTIONS (6)
  - Diarrhoea [None]
  - Dry skin [None]
  - Stomatitis [None]
  - Nasal disorder [None]
  - Ingrowing nail [None]
  - Jaw disorder [None]
